FAERS Safety Report 18259056 (Version 1)
Quarter: 2020Q3

REPORT INFORMATION
  Report Type: Spontaneous
  Country: US (occurrence: US)
  Receive Date: 20200911
  Receipt Date: 20200911
  Transmission Date: 20201103
  Serious: Yes (Death, Other)
  Sender: FDA-Public Use
  Company Number: US-PURDUE-USA-2020-0165817

PATIENT
  Sex: Female

DRUGS (2)
  1. FENTANYL. [Suspect]
     Active Substance: FENTANYL
     Indication: PAIN
     Dosage: 3 PATCH, UNK
     Route: 065
     Dates: start: 20090506, end: 20090506
  2. OXYCONTIN [Suspect]
     Active Substance: OXYCODONE HYDROCHLORIDE
     Indication: PAIN
     Dosage: UNK
     Route: 048

REACTIONS (5)
  - Overdose [Unknown]
  - Cardiac disorder [Unknown]
  - Myocardial infarction [Fatal]
  - Depression [Unknown]
  - Dependence [Fatal]

NARRATIVE: CASE EVENT DATE: 20090506
